FAERS Safety Report 9239105 (Version 2)
Quarter: 2013Q4

REPORT INFORMATION
  Report Type: Report from Study
  Country: CA (occurrence: CA)
  Receive Date: 20130418
  Receipt Date: 20131108
  Transmission Date: 20140711
  Serious: Yes (Other)
  Sender: FDA-Public Use
  Company Number: CA-JNJFOC-20130406960

PATIENT
  Age: 46 Year
  Sex: Female
  Weight: 102 kg

DRUGS (10)
  1. REMICADE [Suspect]
     Indication: PSORIASIS
     Dosage: THE PATIENT HAD APPROXIMATELY RECEIVED 5 INFUSIONS
     Route: 042
     Dates: end: 20130206
  2. REMICADE [Suspect]
     Indication: PSORIASIS
     Route: 042
     Dates: start: 20120823
  3. SYNTHROID [Concomitant]
     Route: 048
  4. LOSEC [Concomitant]
     Route: 048
  5. SEEGLU [Concomitant]
     Route: 048
  6. ARTHROTEC [Concomitant]
     Route: 048
  7. ATORVASTATIN [Concomitant]
     Route: 048
  8. MIRTAZAPINE [Concomitant]
     Route: 048
  9. QUETIAPINE [Concomitant]
     Route: 048
  10. CITALOPRAM [Concomitant]
     Route: 048

REACTIONS (4)
  - Antinuclear antibody positive [Recovered/Resolved with Sequelae]
  - Arthralgia [Recovered/Resolved with Sequelae]
  - Oral infection [Recovered/Resolved with Sequelae]
  - Local swelling [Recovered/Resolved with Sequelae]
